FAERS Safety Report 7495234-6 (Version None)
Quarter: 2011Q2

REPORT INFORMATION
  Report Type: 
  Country: None (occurrence: None)
  Receive Date: 20110522
  Receipt Date: 20110509
  Transmission Date: 20111010
  Serious: Yes (Other)
  Sender: FDA-Public Use
  Company Number: US-ELI_LILLY_AND_COMPANY-US201006002848

PATIENT
  Sex: Female
  Weight: 56.689 kg

DRUGS (3)
  1. FORTEO [Suspect]
     Indication: OSTEOPOROSIS
     Dosage: 20 UG, DAILY (1/D)
     Dates: start: 20100505
  2. FORTEO [Suspect]
     Dosage: 20 UG, DAILY (1/D)
  3. ZOCOR [Concomitant]
     Indication: BLOOD CHOLESTEROL
     Dates: end: 20100910

REACTIONS (7)
  - VAGINAL HAEMORRHAGE [None]
  - ASTHENIA [None]
  - MUSCLE SPASMS [None]
  - UTERINE PROLAPSE [None]
  - ABDOMINAL PAIN UPPER [None]
  - FATIGUE [None]
  - ABDOMINAL PAIN [None]
